FAERS Safety Report 11828253 (Version 2)
Quarter: 2016Q2

REPORT INFORMATION
  Report Type: Spontaneous
  Country: JP (occurrence: JP)
  Receive Date: 20151211
  Receipt Date: 20160425
  Transmission Date: 20160815
  Serious: Yes (Life-Threatening, Hospitalization)
  Sender: FDA-Public Use
  Company Number: JP-ELI_LILLY_AND_COMPANY-JP201512002489

PATIENT
  Age: 65 Year
  Weight: 58 kg

DRUGS (2)
  1. PACLITAXEL. [Suspect]
     Active Substance: PACLITAXEL
     Indication: GASTRIC CANCER
     Dosage: 120 MG, OTHER
     Route: 042
     Dates: start: 20151013, end: 20151027
  2. CYRAMZA [Suspect]
     Active Substance: RAMUCIRUMAB
     Indication: GASTRIC CANCER
     Dosage: 440 MG, OTHER
     Route: 042
     Dates: start: 20151013, end: 20151027

REACTIONS (3)
  - Interstitial lung disease [Recovering/Resolving]
  - Neutrophil count decreased [Recovered/Resolved]
  - Pneumocystis jirovecii pneumonia [Recovering/Resolving]

NARRATIVE: CASE EVENT DATE: 20151101
